FAERS Safety Report 7047770-4 (Version None)
Quarter: 2010Q4

REPORT INFORMATION
  Report Type: 
  Country: None (occurrence: None)
  Receive Date: 20101015
  Receipt Date: 20101004
  Transmission Date: 20110411
  Serious: Yes (Hospitalization)
  Sender: FDA-Public Use
  Company Number: DK-PFIZER INC-2010117704

PATIENT
  Age: 58 Year
  Sex: Male

DRUGS (4)
  1. SILDENAFIL CITRATE [Suspect]
     Indication: PULMONARY HYPERTENSION
     Dosage: 50 MG, 3X/DAY
     Route: 048
     Dates: start: 20070419
  2. ILOMEDIN [Suspect]
     Dosage: UNK
     Route: 055
  3. BOSENTAN [Suspect]
     Indication: PULMONARY ARTERIAL HYPERTENSION
     Dosage: 62.5 MG, 2X/DAY
     Route: 048
     Dates: start: 20080910, end: 20081009
  4. BOSENTAN [Suspect]
     Dosage: 125 MG, 2X/DAY
     Route: 048
     Dates: start: 20081009

REACTIONS (2)
  - CARDIAC FAILURE [None]
  - RIGHT VENTRICULAR FAILURE [None]
